FAERS Safety Report 9759582 (Version 3)
Quarter: 2015Q3

REPORT INFORMATION
  Report Type: Spontaneous
  Country: US (occurrence: US)
  Receive Date: 20131216
  Receipt Date: 20150805
  Transmission Date: 20151125
  Serious: No
  Sender: FDA-Public Use
  Company Number: US-GILEAD-2010-0028012

PATIENT
  Age: 83 Year
  Sex: Male
  Weight: 68.04 kg

DRUGS (15)
  1. SIMVASTATIN. [Concomitant]
     Active Substance: SIMVASTATIN
  2. PRILOSEC [Concomitant]
     Active Substance: OMEPRAZOLE MAGNESIUM
  3. FOSAMAX [Concomitant]
     Active Substance: ALENDRONATE SODIUM
  4. FISH OIL [Concomitant]
     Active Substance: FISH OIL
  5. GUAIFENESIN. [Concomitant]
     Active Substance: GUAIFENESIN
  6. VISION FORMULA [Concomitant]
  7. LASIX [Concomitant]
     Active Substance: FUROSEMIDE
  8. LEVOTHROID [Concomitant]
     Active Substance: LEVOTHYROXINE SODIUM
  9. KLOR-CON [Concomitant]
     Active Substance: POTASSIUM CHLORIDE
  10. METOPROLOL [Concomitant]
     Active Substance: METOPROLOL
  11. CALCIUM CARB W/D [Concomitant]
  12. KLONOPIN [Concomitant]
     Active Substance: CLONAZEPAM
  13. XANAX [Concomitant]
     Active Substance: ALPRAZOLAM
  14. COLCHICINE. [Concomitant]
     Active Substance: COLCHICINE
  15. LETAIRIS [Suspect]
     Active Substance: AMBRISENTAN
     Indication: PULMONARY ARTERIAL HYPERTENSION
     Route: 048
     Dates: start: 20100219

REACTIONS (1)
  - Dyspnoea [Unknown]
